FAERS Safety Report 4860544-5 (Version None)
Quarter: 2005Q4

REPORT INFORMATION
  Report Type: 
  Country: None (occurrence: None)
  Receive Date: 20051216
  Receipt Date: 20051207
  Transmission Date: 20060501
  Serious: Yes (Other)
  Sender: FDA-Public Use
  Company Number: 05-000934

PATIENT
  Age: 54 Year
  Sex: Female
  Weight: 80.7 kg

DRUGS (1)
  1. FEMRING(ESTRADIOL ACETATE) VAGIANL RING, .05MG [Suspect]
     Indication: ARTIFICIAL MENOPAUSE
     Dosage: 0.05 MG, QD, VAGINAL
     Route: 067
     Dates: start: 20050501

REACTIONS (2)
  - MEDICAL DEVICE COMPLICATION [None]
  - VAGINAL HAEMORRHAGE [None]
